FAERS Safety Report 8000208-2 (Version None)
Quarter: 2011Q4

REPORT INFORMATION
  Report Type: 
  Country: None (occurrence: None)
  Receive Date: 20111220
  Receipt Date: 20111220
  Transmission Date: 20120403
  Serious: Yes (Other)
  Sender: FDA-Public Use
  Company Number: None

PATIENT
  Sex: Female

DRUGS (1)
  1. SIMPONI [Suspect]
     Dosage: 50MG QMN SUB-Q
     Route: 058
     Dates: start: 20110920, end: 20111215

REACTIONS (1)
  - TRACHEITIS [None]
